FAERS Safety Report 12502152 (Version 3)
Quarter: 2016Q3

REPORT INFORMATION
  Report Type: Spontaneous
  Country: JP (occurrence: JP)
  Receive Date: 20160627
  Receipt Date: 20160727
  Transmission Date: 20161109
  Serious: Yes (Hospitalization)
  Sender: FDA-Public Use
  Company Number: JP-B.I. PHARMACEUTICALS,INC./RIDGEFIELD-2016-BI-40947NB

PATIENT
  Age: 79 Year
  Sex: Female

DRUGS (3)
  1. NATRIX [Suspect]
     Active Substance: INDAPAMIDE
     Indication: HYPERTENSION
     Route: 048
  2. AZILVA [Suspect]
     Active Substance: AZILSARTAN KAMEDOXOMIL
     Indication: HYPERTENSION
     Route: 048
  3. JARDIANCE [Suspect]
     Active Substance: EMPAGLIFLOZIN
     Indication: TYPE 2 DIABETES MELLITUS
     Dosage: 10 MG
     Route: 048
     Dates: start: 20160601

REACTIONS (4)
  - Malaise [Recovered/Resolved]
  - Asthenia [Recovered/Resolved]
  - Fall [Unknown]
  - Drug eruption [Unknown]

NARRATIVE: CASE EVENT DATE: 20160617
